FAERS Safety Report 9904075 (Version 1)
Quarter: 2014Q1

REPORT INFORMATION
  Report Type: Spontaneous
  Country: US (occurrence: US)
  Receive Date: 20140218
  Receipt Date: 20140218
  Transmission Date: 20141002
  Serious: No
  Sender: FDA-Public Use
  Company Number: US-BIOGENIDEC-2014BI012757

PATIENT
  Age: 66 Year
  Sex: Female

DRUGS (1)
  1. TECFIDERA [Suspect]
     Indication: MULTIPLE SCLEROSIS
     Dates: start: 2013, end: 2013

REACTIONS (7)
  - Nasopharyngitis [Not Recovered/Not Resolved]
  - Asthenia [Recovered/Resolved]
  - Fall [Recovered/Resolved]
  - Contusion [Recovered/Resolved]
  - Bone contusion [Recovered/Resolved]
  - Arthralgia [Recovered/Resolved]
  - Polyarthritis [Not Recovered/Not Resolved]
